FAERS Safety Report 5875112-6 (Version None)
Quarter: 2008Q3

REPORT INFORMATION
  Report Type: 
  Country: None (occurrence: None)
  Receive Date: 20080909
  Receipt Date: 20080903
  Transmission Date: 20090109
  Serious: Yes (Death)
  Sender: FDA-Public Use
  Company Number: A0746421A

PATIENT
  Age: 74 Year
  Sex: Female

DRUGS (1)
  1. SERETIDE [Suspect]
     Indication: BRONCHITIS
     Route: 055
     Dates: start: 20070901, end: 20080615

REACTIONS (3)
  - OBSTRUCTIVE AIRWAYS DISORDER [None]
  - PNEUMONIA [None]
  - RESPIRATORY FAILURE [None]
